FAERS Safety Report 19788191 (Version 2)
Quarter: 2021Q3

REPORT INFORMATION
  Report Type: Spontaneous
  Country: CA (occurrence: CA)
  Receive Date: 20210905
  Receipt Date: 20210923
  Transmission Date: 20211014
  Serious: Yes (Hospitalization, Other)
  Sender: FDA-Public Use
  Company Number: CA-TEVA-2021-CA-1948188

PATIENT
  Age: 58 Year
  Sex: Female

DRUGS (1)
  1. RAMIPRIL. [Suspect]
     Active Substance: RAMIPRIL
     Indication: HYPERTENSION
     Route: 065

REACTIONS (4)
  - Endotracheal intubation [Not Recovered/Not Resolved]
  - Tracheostomy [Not Recovered/Not Resolved]
  - Angioedema [Not Recovered/Not Resolved]
  - Vocal cord dysfunction [Unknown]
